FAERS Safety Report 5071741-0 (Version None)
Quarter: 2006Q3

REPORT INFORMATION
  Report Type: 
  Country: None (occurrence: None)
  Receive Date: 20060801
  Receipt Date: 20060714
  Transmission Date: 20061208
  Serious: Yes (Hospitalization)
  Sender: FDA-Public Use
  Company Number: NL200607002543

PATIENT
  Age: 79 Year
  Sex: Female
  Weight: 44 kg

DRUGS (2)
  1. TERIPARATIDE(TERIPARATIDE) PEN,DISPOSABLE [Suspect]
     Indication: OSTEOPOROSIS
     Dosage: 250, MCG PER ML, SUBCUTANEOUS
     Route: 058
     Dates: start: 20050708, end: 20060714
  2. FORTEO [Concomitant]

REACTIONS (2)
  - LUNG NEOPLASM MALIGNANT [None]
  - TRANSIENT ISCHAEMIC ATTACK [None]
